FAERS Safety Report 15842599 (Version 2)
Quarter: 2019Q1

REPORT INFORMATION
  Report Type: Spontaneous
  Country: IL (occurrence: IL)
  Receive Date: 20190118
  Receipt Date: 20190222
  Transmission Date: 20190417
  Serious: Yes (Hospitalization)
  Sender: FDA-Public Use
  Company Number: IL-TEVA-2019-IL-997516

PATIENT
  Age: 73 Year
  Sex: Male

DRUGS (12)
  1. SODIUM CHLORIDE 0.9% [Suspect]
     Active Substance: SODIUM CHLORIDE
     Route: 065
  2. OPTALGIN DROPS [Concomitant]
     Route: 065
  3. PAN-CEFAZOLIN 1G [Suspect]
     Active Substance: CEFAZOLIN SODIUM
     Route: 042
  4. NOVONORM 0.5 MG [Concomitant]
     Active Substance: REPAGLINIDE
     Dosage: .5 MILLIGRAM DAILY; BEFORE BREAKFAST
     Route: 048
  5. NORMOPRESSAN 0.075 MG [Concomitant]
     Dosage: .225 MILLIGRAM DAILY;
     Route: 048
  6. CIPRO-TEVA (CIPROXIN) [Suspect]
     Active Substance: CIPROFLOXACIN
     Route: 042
  7. METOPRESS RETARD 100 MG [Concomitant]
     Dosage: 200 MILLIGRAM DAILY;
     Route: 048
  8. TRAJENTA 5 MG [Concomitant]
     Dosage: AT NOON
     Route: 048
  9. VASODIP 10 MG [Concomitant]
     Dosage: 20 MILLIGRAM DAILY;
     Route: 048
  10. XATRAL 2.5 MG [Concomitant]
     Dosage: 2.5 MILLIGRAM DAILY; AT EVENING
     Route: 048
  11. FUSID 40 MG [Concomitant]
     Route: 048
  12. PLAVIX [Concomitant]
     Active Substance: CLOPIDOGREL BISULFATE
     Dosage: 75 MILLIGRAM DAILY;
     Route: 048

REACTIONS (8)
  - Neutropenia [Unknown]
  - Leukopenia [Unknown]
  - Drug hypersensitivity [Recovered/Resolved]
  - Drug eruption [Recovered/Resolved]
  - Agranulocytosis [Unknown]
  - Immune system disorder [Unknown]
  - Rash generalised [Recovered/Resolved]
  - Pruritus [Unknown]

NARRATIVE: CASE EVENT DATE: 20190108
